FAERS Safety Report 4546113-5 (Version None)
Quarter: 2005Q1

REPORT INFORMATION
  Report Type: 
  Country: None (occurrence: None)
  Receive Date: 20050103
  Receipt Date: 20041220
  Transmission Date: 20050727
  Serious: Yes (Other)
  Sender: FDA-Public Use
  Company Number: 2004043853

PATIENT
  Sex: Male

DRUGS (2)
  1. TAHOR (ATORVASTATIN) [Suspect]
     Indication: ILL-DEFINED DISORDER
     Dosage: 80 MG  (40 MG, 2 IN 1 D)
     Dates: end: 20040615
  2. REPAGLINIDE [Concomitant]

REACTIONS (3)
  - HEPATITIS [None]
  - MEDICATION ERROR [None]
  - PANCREATIC DISORDER [None]
